FAERS Safety Report 8078960-X (Version None)
Quarter: 2012Q1

REPORT INFORMATION
  Report Type: 
  Country: None (occurrence: None)
  Receive Date: 20120128
  Receipt Date: 20110620
  Transmission Date: 20120608
  Serious: No
  Sender: FDA-Public Use
  Company Number: US-ABBOTT-11P-163-0734144-00

PATIENT
  Sex: Female

DRUGS (10)
  1. VENOFER [Suspect]
     Indication: IRON DEFICIENCY
     Route: 042
  2. LIDOCAINE [Concomitant]
     Indication: PRODUCT USED FOR UNKNOWN INDICATION
     Dosage: FOR PORT NEEDED
  3. ENDOCORT [Concomitant]
     Indication: PRODUCT USED FOR UNKNOWN INDICATION
  4. VITAMIN D [Concomitant]
     Indication: PRODUCT USED FOR UNKNOWN INDICATION
     Dosage: 50000 UNIT ONCE WEEKLY
  5. GENERIC ZANTAC [Concomitant]
     Indication: PRODUCT USED FOR UNKNOWN INDICATION
  6. SYNTHROID [Concomitant]
     Indication: PRODUCT USED FOR UNKNOWN INDICATION
  7. VITAMIN B-12 [Concomitant]
     Indication: LICHEN SCLEROSUS
     Route: 050
  8. OINTMENT FOR LICHEN SCLEROSUS [Concomitant]
     Indication: LICHEN SCLEROSUS
     Dosage: PRN LABIA
  9. HUMIRA [Suspect]
     Indication: PRODUCT USED FOR UNKNOWN INDICATION
     Dates: start: 20080101
  10. EFFEXOR [Concomitant]
     Indication: PRODUCT USED FOR UNKNOWN INDICATION
     Dosage: QD QPM

REACTIONS (8)
  - ERYTHEMA [None]
  - INJECTION SITE REACTION [None]
  - FEELING ABNORMAL [None]
  - URTICARIA [None]
  - PRURITUS [None]
  - WEIGHT INCREASED [None]
  - INCREASED APPETITE [None]
  - IRON DEFICIENCY [None]
